FAERS Safety Report 4838893-6 (Version None)
Quarter: 2005Q4

REPORT INFORMATION
  Report Type: 
  Country: None (occurrence: None)
  Receive Date: 20051129
  Receipt Date: 20051014
  Transmission Date: 20060501
  Serious: No
  Sender: FDA-Public Use
  Company Number: US-GLAXOSMITHKLINE-A0578281A

PATIENT
  Age: 81 Year
  Sex: Female

DRUGS (7)
  1. LOTRONEX [Suspect]
     Indication: IRRITABLE BOWEL SYNDROME
     Dosage: .5MG PER DAY
     Route: 048
     Dates: start: 20051013
  2. IMODIUM [Concomitant]
  3. LOMOTIL [Concomitant]
  4. PREDNISONE [Concomitant]
  5. DIAVAN [Concomitant]
  6. ZIAC [Concomitant]
  7. ASPIRIN [Concomitant]

REACTIONS (2)
  - FEELING ABNORMAL [None]
  - WEIGHT DECREASED [None]
